FAERS Safety Report 9955645 (Version 1)
Quarter: 2014Q1

REPORT INFORMATION
  Report Type: Report from Study
  Country: US (occurrence: US)
  Receive Date: 20140304
  Receipt Date: 20140304
  Transmission Date: 20141002
  Serious: No
  Sender: FDA-Public Use
  Company Number: US-ABBVIE-13P-163-1074784-00

PATIENT
  Age: 72 Year
  Sex: Female

DRUGS (5)
  1. HUMIRA [Suspect]
     Indication: RHEUMATOID ARTHRITIS
     Route: 058
     Dates: start: 20130227, end: 201304
  2. NORVASC [Concomitant]
     Indication: ANGINA PECTORIS
  3. SYNTHROID [Concomitant]
     Indication: PRODUCT USED FOR UNKNOWN INDICATION
  4. METHOTREXATE SODIUM [Concomitant]
     Indication: PRODUCT USED FOR UNKNOWN INDICATION
     Dosage: 25 MG 1 TO 2 TIMES WEEKLY
     Route: 058
  5. PRILOSEC [Concomitant]
     Indication: DYSPEPSIA

REACTIONS (7)
  - Sinus disorder [Unknown]
  - Rash pruritic [Unknown]
  - Headache [Unknown]
  - Oropharyngeal pain [Unknown]
  - Hypersensitivity [Unknown]
  - Dizziness [Unknown]
  - Paraesthesia [Unknown]
